FAERS Safety Report 9721965 (Version 9)
Quarter: 2015Q2

REPORT INFORMATION
  Report Type: Spontaneous
  Country: CA (occurrence: CA)
  Receive Date: 20131202
  Receipt Date: 20150602
  Transmission Date: 20150821
  Serious: Yes (Other)
  Sender: FDA-Public Use
  Company Number: CA-ROCHE-1310623

PATIENT
  Age: 39 Year
  Sex: Female
  Weight: 99 kg

DRUGS (6)
  1. XOLAIR [Suspect]
     Active Substance: OMALIZUMAB
     Route: 058
     Dates: start: 20131121
  2. XOLAIR [Suspect]
     Active Substance: OMALIZUMAB
     Route: 058
     Dates: start: 20131107
  3. XOLAIR [Suspect]
     Active Substance: OMALIZUMAB
     Route: 058
     Dates: start: 20140213
  4. XOLAIR [Suspect]
     Active Substance: OMALIZUMAB
     Indication: ASTHMA
     Route: 058
     Dates: start: 20130617
  5. XOLAIR [Suspect]
     Active Substance: OMALIZUMAB
     Route: 058
     Dates: start: 20130909
  6. XOLAIR [Suspect]
     Active Substance: OMALIZUMAB
     Route: 058
     Dates: start: 20140227

REACTIONS (23)
  - Eye swelling [Recovered/Resolved]
  - Urticaria [Recovered/Resolved]
  - Pruritus [Unknown]
  - Weight increased [Unknown]
  - Pyrexia [Unknown]
  - Injection site swelling [Recovered/Resolved]
  - Fatigue [Recovered/Resolved]
  - Pulmonary congestion [Unknown]
  - Respiratory tract congestion [Unknown]
  - Dyspnoea [Recovered/Resolved]
  - Skin reaction [Unknown]
  - Injection site inflammation [Recovered/Resolved]
  - Acne [Not Recovered/Not Resolved]
  - Ear infection [Recovering/Resolving]
  - Influenza [Unknown]
  - Immunodeficiency [Unknown]
  - Injection site reaction [Recovered/Resolved]
  - Injection site erythema [Recovered/Resolved]
  - Insomnia [Recovered/Resolved]
  - Blood pressure increased [Unknown]
  - Injection site pruritus [Unknown]
  - Myalgia [Unknown]
  - Nasopharyngitis [Unknown]

NARRATIVE: CASE EVENT DATE: 20130617
